FAERS Safety Report 21897714 (Version 1)
Quarter: 2023Q1

REPORT INFORMATION
  Report Type: Spontaneous
  Country: US (occurrence: None)
  Receive Date: 20230120
  Receipt Date: 20230120
  Transmission Date: 20230417
  Serious: No
  Sender: FDA-Public Use
  Company Number: None

PATIENT
  Age: 32 Year
  Sex: Female
  Weight: 121.5 kg

DRUGS (6)
  1. DIVALPROEX SODIUM [Suspect]
     Active Substance: DIVALPROEX SODIUM
     Indication: Mania
     Dosage: OTHER QUANTITY : 2 TABLET(S);?FREQUENCY : DAILY;?
     Route: 048
  2. LITHIUM [Concomitant]
     Active Substance: LITHIUM
  3. SEROQUEL [Concomitant]
     Active Substance: QUETIAPINE FUMARATE
  4. CLONAZEPAM [Concomitant]
     Active Substance: CLONAZEPAM
  5. LEVOTHYROXINE [Concomitant]
     Active Substance: LEVOTHYROXINE
  6. ZINC [Concomitant]
     Active Substance: ZINC

REACTIONS (4)
  - Thought blocking [None]
  - Decreased interest [None]
  - Apathy [None]
  - Feeling abnormal [None]

NARRATIVE: CASE EVENT DATE: 20210901
